FAERS Safety Report 9246099 (Version 2)
Quarter: 2013Q2

REPORT INFORMATION
  Report Type: Spontaneous
  Country: US (occurrence: US)
  Receive Date: 20130422
  Receipt Date: 20130502
  Transmission Date: 20140414
  Serious: No
  Sender: FDA-Public Use
  Company Number: US-VERTEX PHARMACEUTICALS INC.-2013-005048

PATIENT
  Age: 56 Year
  Sex: 0

DRUGS (5)
  1. INCIVEK [Suspect]
     Indication: HEPATITIS C
     Dosage: 750 MG, TID
     Route: 048
     Dates: start: 20130312
  2. RIBAVIRIN [Suspect]
     Indication: HEPATITIS C
     Dosage: 600 MG AM AND 600 MG PM
     Dates: start: 20130312
  3. PEGASYS [Suspect]
     Indication: HEPATITIS C
     Dosage: 180 ?G, QW
     Route: 058
     Dates: start: 20130312
  4. LISINOPRIL + HIDROCLOROTIAZIDA TEVA [Concomitant]
  5. ALPRAZOLAM [Concomitant]
     Dosage: 0.25 MG

REACTIONS (2)
  - Blood creatine phosphokinase increased [Recovered/Resolved]
  - Myositis [Unknown]
